FAERS Safety Report 8662535 (Version 2)
Quarter: 2013Q4

REPORT INFORMATION
  Report Type: Spontaneous
  Country: JP (occurrence: JP)
  Receive Date: 20120712
  Receipt Date: 20131105
  Transmission Date: 20140711
  Serious: Yes (Hospitalization)
  Sender: FDA-Public Use
  Company Number: JP-009507513-1207JPN002605

PATIENT
  Sex: 0

DRUGS (2)
  1. JANUVIA TABLETS 25MG [Suspect]
     Dosage: DAILY DOSE UNKNOWN
     Route: 048
  2. ANCARON [Suspect]
     Dosage: DAILY DOSE UNKNOWN
     Route: 065

REACTIONS (1)
  - Interstitial lung disease [Recovering/Resolving]
